FAERS Safety Report 10304827 (Version 5)
Quarter: 2015Q3

REPORT INFORMATION
  Report Type: Report from Study
  Country: FR (occurrence: FR)
  Receive Date: 20140715
  Receipt Date: 20150807
  Transmission Date: 20151125
  Serious: Yes (Death, Other)
  Sender: FDA-Public Use
  Company Number: PHHY2014FR051743

PATIENT
  Age: 64 Year
  Sex: Female

DRUGS (4)
  1. LDK378 [Suspect]
     Active Substance: CERITINIB
     Dosage: 450 MG, QD
     Route: 048
     Dates: start: 20140513
  2. LDK378 [Suspect]
     Active Substance: CERITINIB
     Indication: LUNG ADENOCARCINOMA STAGE IV
     Dosage: 450 MG, QD
     Route: 048
     Dates: start: 20140218
  3. LDK378 [Suspect]
     Active Substance: CERITINIB
     Indication: NON-SMALL CELL LUNG CANCER METASTATIC
     Dosage: 750 MG, QD
     Route: 048
     Dates: start: 20140116
  4. LDK378 [Suspect]
     Active Substance: CERITINIB
     Indication: ANAPLASTIC LYMPHOMA KINASE GENE MUTATION
     Dosage: 600 MG, QD
     Route: 048

REACTIONS (10)
  - Nausea [Recovered/Resolved]
  - Hemiplegia [Unknown]
  - Thrombocytosis [Recovered/Resolved]
  - Coma [Fatal]
  - Vomiting [Recovered/Resolved]
  - Non-small cell lung cancer [Fatal]
  - Metastases to meninges [Unknown]
  - Weight decreased [Unknown]
  - Metastases to central nervous system [Unknown]
  - Leukocytosis [Recovered/Resolved]

NARRATIVE: CASE EVENT DATE: 20140106
